FAERS Safety Report 13667654 (Version 3)
Quarter: 2017Q4

REPORT INFORMATION
  Report Type: Report from Study
  Country: None (occurrence: US)
  Receive Date: 20170620
  Receipt Date: 20171122
  Transmission Date: 20180320
  Serious: Yes (Other)
  Sender: FDA-Public Use
  Company Number: US-ABBVIE-17K-163-2007359-00

PATIENT
  Sex: Female

DRUGS (2)
  1. HUMIRA [Suspect]
     Active Substance: ADALIMUMAB
     Indication: RHEUMATOID ARTHRITIS
     Route: 058
     Dates: end: 201702
  2. HUMIRA [Suspect]
     Active Substance: ADALIMUMAB
     Route: 058
     Dates: start: 20170324

REACTIONS (13)
  - Cerebrovascular accident [Recovering/Resolving]
  - Back pain [Recovering/Resolving]
  - Coma [Unknown]
  - Central nervous system lesion [Unknown]
  - Arthralgia [Recovering/Resolving]
  - Seizure [Not Recovered/Not Resolved]
  - Malaise [Recovering/Resolving]
  - Neck pain [Unknown]
  - Fall [Recovering/Resolving]
  - Osteoarthritis [Recovering/Resolving]
  - Contusion [Recovering/Resolving]
  - Arthralgia [Not Recovered/Not Resolved]
  - Arthralgia [Recovering/Resolving]

NARRATIVE: CASE EVENT DATE: 2012
